FAERS Safety Report 5303187-1 (Version None)
Quarter: 2007Q2

REPORT INFORMATION
  Report Type: 
  Country: None (occurrence: None)
  Receive Date: 20070420
  Receipt Date: 20070410
  Transmission Date: 20071010
  Serious: Yes (Hospitalization)
  Sender: FDA-Public Use
  Company Number: DE-ROCHE-459178

PATIENT
  Age: 43 Year
  Sex: Female

DRUGS (3)
  1. PEG-INTERFERON ALFA 2A (RO 25-8310) [Suspect]
     Route: 058
     Dates: start: 20060626, end: 20060731
  2. RIBAVIRIN [Suspect]
     Route: 048
     Dates: start: 20060626, end: 20060731
  3. BLINDED THYMOSIN ALFA 1 [Suspect]
     Route: 058
     Dates: start: 20060626

REACTIONS (4)
  - ANAEMIA [None]
  - MENORRHAGIA [None]
  - THROMBOCYTOPENIA [None]
  - UTERINE HAEMORRHAGE [None]
